FAERS Safety Report 10724184 (Version 2)
Quarter: 2015Q1

REPORT INFORMATION
  Report Type: Report from Study
  Country: DE (occurrence: DE)
  Receive Date: 20150120
  Receipt Date: 20150210
  Transmission Date: 20150721
  Serious: Yes (Hospitalization, Other)
  Sender: FDA-Public Use
  Company Number: DE-ABBVIE-15K-062-1333613-00

PATIENT
  Age: 21 Year
  Sex: Female
  Weight: 75 kg

DRUGS (2)
  1. HUMIRA [Suspect]
     Active Substance: ADALIMUMAB
     Indication: RHEUMATOID ARTHRITIS
  2. HUMIRA [Suspect]
     Active Substance: ADALIMUMAB
     Indication: JUVENILE IDIOPATHIC ARTHRITIS
     Route: 058
     Dates: start: 20121111, end: 20150108

REACTIONS (11)
  - Dizziness [Unknown]
  - Dizziness [Recovered/Resolved]
  - Anxiety disorder [Recovered/Resolved]
  - Hormone level abnormal [Recovered/Resolved]
  - Hormone level abnormal [Unknown]
  - Panic attack [Unknown]
  - Impaired work ability [Not Recovered/Not Resolved]
  - Panic attack [Recovered/Resolved]
  - Anxiety disorder [Unknown]
  - Nausea [Unknown]
  - Nausea [Recovered/Resolved]

NARRATIVE: CASE EVENT DATE: 201308
